FAERS Safety Report 21400888 (Version 2)
Quarter: 2022Q4

REPORT INFORMATION
  Report Type: Spontaneous
  Country: US (occurrence: US)
  Receive Date: 20221003
  Receipt Date: 20221005
  Transmission Date: 20230112
  Serious: No
  Sender: FDA-Public Use
  Company Number: US-TAKEDA-2022TUS069148

PATIENT

DRUGS (1)
  1. HYQVIA [Suspect]
     Active Substance: HUMAN IMMUNOGLOBULIN G\HYALURONIDASE RECOMBINANT HUMAN
     Indication: Congenital hypogammaglobulinaemia
     Dosage: 80 GRAM, Q3WEEKS
     Route: 058

REACTIONS (4)
  - Product temperature excursion issue [Unknown]
  - Product dose omission issue [Unknown]
  - Product distribution issue [Unknown]
  - No adverse event [Unknown]
